FAERS Safety Report 6611700-7 (Version None)
Quarter: 2010Q1

REPORT INFORMATION
  Report Type: 
  Country: None (occurrence: None)
  Receive Date: 20100303
  Receipt Date: 20100219
  Transmission Date: 20100710
  Serious: Yes (Hospitalization)
  Sender: FDA-Public Use
  Company Number: DE-WYE-G05595810

PATIENT
  Sex: Female

DRUGS (5)
  1. CLIMOPAX [Suspect]
     Dosage: OVERDOSE AMOUNT UNKNOWN
     Route: 048
     Dates: start: 20100218, end: 20100218
  2. PANTOPRAZOLE [Suspect]
     Dosage: OVERDOSE AMOUNT UNKNOWN.
     Route: 048
     Dates: start: 20100218, end: 20100218
  3. VALPROIC ACID [Suspect]
     Dosage: OVERDOSE AMOUNT 10000 MG-12500 MG, ALTOGETHER 20-25 TABLETS
     Route: 048
     Dates: start: 20100218, end: 20100218
  4. ETHANOL [Suspect]
     Dosage: OVERDOSE AMOUNT UNKNOWN
     Route: 048
     Dates: start: 20100218, end: 20100218
  5. SULFASALAZINE [Suspect]
     Dosage: OVERDOSE AMOUNT UNKNOWN
     Route: 048
     Dates: start: 20100218, end: 20100218

REACTIONS (2)
  - INTENTIONAL OVERDOSE [None]
  - SUICIDE ATTEMPT [None]
